FAERS Safety Report 5163460-7 (Version None)
Quarter: 2006Q4

REPORT INFORMATION
  Report Type: 
  Country: None (occurrence: None)
  Receive Date: 20061124
  Receipt Date: 20061114
  Transmission Date: 20070319
  Serious: Yes (Other)
  Sender: FDA-Public Use
  Company Number: 2006130109

PATIENT
  Age: 84 Year
  Sex: Female

DRUGS (9)
  1. NORVASC [Suspect]
     Dosage: 2.5 MG (2.5 MG, 1 IN 1 D)
  2. LIPITOR [Suspect]
     Indication: BLOOD CHOLESTEROL INCREASED
     Dates: start: 20030601
  3. COUMADIN [Concomitant]
  4. TOPROL-XL [Concomitant]
  5. DEMADEX [Concomitant]
  6. COZAAR [Concomitant]
  7. NITROGLYCERIN [Concomitant]
  8. NEXIUM [Concomitant]
  9. ZETIA [Concomitant]

REACTIONS (7)
  - CEREBROVASCULAR ACCIDENT [None]
  - GAIT DISTURBANCE [None]
  - MOBILITY DECREASED [None]
  - MYALGIA [None]
  - MYOCARDIAL INFARCTION [None]
  - OSTEOPOROSIS [None]
  - STENT PLACEMENT [None]
